FAERS Safety Report 6420069-2 (Version None)
Quarter: 2009Q4

REPORT INFORMATION
  Report Type: 
  Country: None (occurrence: None)
  Receive Date: 20091029
  Receipt Date: 20091026
  Transmission Date: 20100525
  Serious: Yes (Life-Threatening)
  Sender: FDA-Public Use
  Company Number: US-PFIZER INC-2009237935

PATIENT
  Sex: Male
  Weight: 74.83 kg

DRUGS (9)
  1. AMLODIPINE BESILATE, ATORVASTATIN CALCIUM [Suspect]
     Indication: HYPERTENSION
     Dosage: 10 MG/20 MG, 1X/DAY
     Route: 048
     Dates: start: 20080915
  2. ATACAND [Suspect]
     Indication: HYPERTENSION
     Dosage: 16 MG, 1X/DAY
     Route: 048
     Dates: start: 20070920, end: 20081029
  3. ATENOLOL [Concomitant]
     Dosage: UNK
     Dates: start: 20060401
  4. ALLOPURINOL [Concomitant]
     Dosage: UNK
  5. CLONAZEPAM [Concomitant]
     Dosage: UNK
     Dates: start: 20060401
  6. ZANTAC [Concomitant]
     Dosage: UNK
     Dates: start: 20070919
  7. INDAPAMIDE [Concomitant]
     Dosage: UNK
     Dates: start: 20071004
  8. CALCIUM [Concomitant]
     Dosage: UNK
     Dates: start: 20071119
  9. TAMSULOSIN HYDROCHLORIDE [Concomitant]
     Dosage: UNK
     Dates: start: 20080811

REACTIONS (2)
  - CARDIAC FAILURE CONGESTIVE [None]
  - RENAL FAILURE [None]
